FAERS Safety Report 13437928 (Version 2)
Quarter: 2017Q2

REPORT INFORMATION
  Report Type: Spontaneous
  Country: US (occurrence: US)
  Receive Date: 20170413
  Receipt Date: 20170512
  Transmission Date: 20170830
  Serious: Yes (Death, Hospitalization, Other)
  Sender: FDA-Public Use
  Company Number: PHEH2017US010579

PATIENT
  Age: 80 Year
  Sex: Male
  Weight: 69.84 kg

DRUGS (36)
  1. ZAROXOLYN [Suspect]
     Active Substance: METOLAZONE
     Indication: FLUID RETENTION
     Dosage: 1 DF, QD
     Route: 048
     Dates: start: 20160120
  2. CARVEDILOL. [Concomitant]
     Active Substance: CARVEDILOL
     Dosage: 1 DF(6.25 MG), BID
     Route: 048
     Dates: start: 20160811
  3. LOTRISONE [Concomitant]
     Active Substance: BETAMETHASONE DIPROPIONATE\CLOTRIMAZOLE
     Indication: PRODUCT USED FOR UNKNOWN INDICATION
     Dosage: 1 DF, BID
     Route: 065
     Dates: start: 20151016
  4. CICLOPIROX OLAMINE. [Concomitant]
     Active Substance: CICLOPIROX OLAMINE
     Indication: PRODUCT USED FOR UNKNOWN INDICATION
     Dosage: 1 DF, BID
     Route: 065
     Dates: start: 20151014
  5. IPRATROPIUM/ALBUTEROL [Concomitant]
     Active Substance: ALBUTEROL\IPRATROPIUM
     Dosage: 1 DF, BID
     Route: 055
  6. PROZAC [Concomitant]
     Active Substance: FLUOXETINE HYDROCHLORIDE
     Indication: PRODUCT USED FOR UNKNOWN INDICATION
     Dosage: 1 DF, QD
     Route: 048
     Dates: start: 20150625
  7. ALPRAZOLAM. [Concomitant]
     Active Substance: ALPRAZOLAM
     Indication: PRODUCT USED FOR UNKNOWN INDICATION
     Dosage: 1 DF, BID
     Route: 048
     Dates: start: 20141104
  8. DIGOX [Concomitant]
     Active Substance: DIGOXIN
     Dosage: 1 DF, QD
     Route: 048
     Dates: start: 20160425
  9. ENTRESTO [Suspect]
     Active Substance: SACUBITRIL\VALSARTAN
     Dosage: 100 MG, BID
     Route: 048
     Dates: start: 20160811
  10. LOVASTATIN. [Concomitant]
     Active Substance: LOVASTATIN
     Dosage: 1 DF, QD
     Route: 048
     Dates: start: 20160727
  11. URSODIOL. [Concomitant]
     Active Substance: URSODIOL
     Dosage: 1 DF, BID
     Route: 048
     Dates: start: 20160727
  12. PROMETHAZINE - CODEINE [Concomitant]
     Active Substance: CODEINE\PROMETHAZINE
     Indication: PRODUCT USED FOR UNKNOWN INDICATION
     Dosage: 1 TSP, Q8H
     Route: 048
     Dates: start: 20150224
  13. AMIODARONE HCL [Concomitant]
     Active Substance: AMIODARONE HYDROCHLORIDE
     Indication: PRODUCT USED FOR UNKNOWN INDICATION
     Dosage: 1 DF (400 MG), BID
     Route: 048
     Dates: start: 20160804
  14. BUMEX [Concomitant]
     Active Substance: BUMETANIDE
     Dosage: 1 DF, QD
     Route: 048
     Dates: start: 20160727
  15. MUPIROCIN. [Concomitant]
     Active Substance: MUPIROCIN
     Indication: PRODUCT USED FOR UNKNOWN INDICATION
     Dosage: 1 DF, BID
     Route: 065
     Dates: start: 20151014
  16. DIGOX [Concomitant]
     Active Substance: DIGOXIN
     Indication: PRODUCT USED FOR UNKNOWN INDICATION
     Dosage: 1 DF, QD
     Route: 048
     Dates: start: 20151014
  17. AMIODARONE HCL [Concomitant]
     Active Substance: AMIODARONE HYDROCHLORIDE
     Dosage: 1 DF (200 MG), BID
     Route: 048
     Dates: start: 20160811
  18. CARVEDILOL. [Concomitant]
     Active Substance: CARVEDILOL
     Indication: PRODUCT USED FOR UNKNOWN INDICATION
     Dosage: 1 DF(25 MG), BID
     Route: 048
     Dates: start: 20151109
  19. KETOCONAZOLE. [Concomitant]
     Active Substance: KETOCONAZOLE
     Indication: PRODUCT USED FOR UNKNOWN INDICATION
     Dosage: 1 DF, BID
     Route: 065
     Dates: start: 20150803
  20. ZAROXOLYN [Suspect]
     Active Substance: METOLAZONE
     Dosage: 1 DF, QD
     Route: 048
     Dates: start: 20160811
  21. URSODIOL. [Concomitant]
     Active Substance: URSODIOL
     Indication: PRODUCT USED FOR UNKNOWN INDICATION
     Dosage: 1 DF, BID
     Route: 048
     Dates: start: 20150930
  22. DIGOX [Concomitant]
     Active Substance: DIGOXIN
     Dosage: 1 DF, QD
     Route: 048
     Dates: start: 20151208
  23. PNEUMOVAX 23 [Concomitant]
     Active Substance: PNEUMOCOCCAL VACCINE, POLYVALENT 23
     Indication: PRODUCT USED FOR UNKNOWN INDICATION
     Route: 065
  24. BUMEX [Concomitant]
     Active Substance: BUMETANIDE
     Indication: PRODUCT USED FOR UNKNOWN INDICATION
     Dosage: 1 DF, QD
     Route: 048
     Dates: start: 20151014
  25. CARVEDILOL. [Concomitant]
     Active Substance: CARVEDILOL
     Dosage: 1 DF(25 MG), BID
     Route: 048
     Dates: start: 20160727
  26. IPRATROPIUM BROMIDE. [Concomitant]
     Active Substance: IPRATROPIUM BROMIDE
     Indication: PRODUCT USED FOR UNKNOWN INDICATION
     Dosage: 1 DF, Q6H
     Route: 055
     Dates: start: 20160811
  27. ISOSORBIDE MONONITRATE. [Concomitant]
     Active Substance: ISOSORBIDE MONONITRATE
     Dosage: 1 DF, QD
     Route: 048
     Dates: start: 20160727
  28. LOVASTATIN. [Concomitant]
     Active Substance: LOVASTATIN
     Indication: PRODUCT USED FOR UNKNOWN INDICATION
     Dosage: 1 DF, QD
     Route: 048
     Dates: start: 20151009
  29. IPRATROPIUM/ALBUTEROL [Concomitant]
     Active Substance: ALBUTEROL\IPRATROPIUM
     Indication: PRODUCT USED FOR UNKNOWN INDICATION
     Dosage: 1 DF, TID
     Route: 055
     Dates: start: 20150930
  30. LEVAQUIN [Concomitant]
     Active Substance: LEVOFLOXACIN
     Indication: PRODUCT USED FOR UNKNOWN INDICATION
     Dosage: 1 DF, QD
     Route: 048
  31. ENTRESTO [Suspect]
     Active Substance: SACUBITRIL\VALSARTAN
     Indication: CARDIAC FAILURE CHRONIC
     Dosage: 50 MG, BID
     Route: 048
     Dates: start: 20151203
  32. ALLOPURINOL. [Concomitant]
     Active Substance: ALLOPURINOL
     Indication: PRODUCT USED FOR UNKNOWN INDICATION
     Dosage: 1 DF, QD
     Route: 048
     Dates: start: 20160620
  33. BUMEX [Concomitant]
     Active Substance: BUMETANIDE
     Dosage: 0.5 DF, QD
     Route: 048
  34. ELIQUIS [Concomitant]
     Active Substance: APIXABAN
     Indication: PRODUCT USED FOR UNKNOWN INDICATION
     Dosage: 1 DF, BID
     Route: 048
     Dates: start: 20150910
  35. ISOSORBIDE MONONITRATE. [Concomitant]
     Active Substance: ISOSORBIDE MONONITRATE
     Indication: PRODUCT USED FOR UNKNOWN INDICATION
     Dosage: 1 DF, QD
     Route: 048
     Dates: start: 20150803
  36. SILVADENE [Concomitant]
     Active Substance: SILVER SULFADIAZINE
     Indication: PRODUCT USED FOR UNKNOWN INDICATION
     Dosage: 1 DF, BID
     Route: 065
     Dates: start: 20150910

REACTIONS (44)
  - Death [Fatal]
  - Depression [Unknown]
  - Blood creatinine increased [Unknown]
  - Muscular weakness [Unknown]
  - Cardiac murmur [Unknown]
  - Aortic arteriosclerosis [Unknown]
  - Blood glucose increased [Unknown]
  - Asthenia [Unknown]
  - Arthralgia [Unknown]
  - Arrhythmia [Unknown]
  - Neuropathy peripheral [Unknown]
  - Musculoskeletal discomfort [Unknown]
  - Drug use disorder [Unknown]
  - Hepatic steatosis [Unknown]
  - Fatigue [Unknown]
  - Productive cough [Unknown]
  - Blood urea increased [Unknown]
  - Gait disturbance [Unknown]
  - Pain [Unknown]
  - Glomerular filtration rate decreased [Unknown]
  - Weight decreased [Unknown]
  - Dyspnoea [Not Recovered/Not Resolved]
  - Decreased appetite [Unknown]
  - Pruritus [Not Recovered/Not Resolved]
  - Cardiac failure congestive [Unknown]
  - Malaise [Unknown]
  - Oedema peripheral [Unknown]
  - Diastolic dysfunction [Unknown]
  - Renal cyst [Unknown]
  - Blood urea nitrogen/creatinine ratio increased [Unknown]
  - General physical health deterioration [Unknown]
  - Dyspnoea exertional [Unknown]
  - Insomnia [Unknown]
  - Device malfunction [Unknown]
  - Medical device site discharge [Unknown]
  - Gravitational oedema [Unknown]
  - Alanine aminotransferase decreased [Unknown]
  - Dyspnoea at rest [Recovering/Resolving]
  - Wheezing [Recovered/Resolved]
  - Spinal disorder [Unknown]
  - Cardiac valve disease [Unknown]
  - Jugular vein distension [Unknown]
  - Blood bilirubin increased [Unknown]
  - Hypotension [Unknown]

NARRATIVE: CASE EVENT DATE: 20151203
